FAERS Safety Report 12063772 (Version 1)
Quarter: 2016Q1

REPORT INFORMATION
  Report Type: Report from Study
  Country: US (occurrence: US)
  Receive Date: 20160210
  Receipt Date: 20160210
  Transmission Date: 20160526
  Serious: No
  Sender: FDA-Public Use
  Company Number: US-ABBVIE-15P-163-1519427-00

PATIENT
  Age: 42 Year
  Sex: Female

DRUGS (1)
  1. HUMIRA [Suspect]
     Active Substance: ADALIMUMAB
     Indication: COLITIS ULCERATIVE
     Route: 058
     Dates: start: 20150803

REACTIONS (6)
  - Rubber sensitivity [Unknown]
  - Injection site warmth [Unknown]
  - Rash [Unknown]
  - Injection site pruritus [Unknown]
  - Injection site inflammation [Unknown]
  - Injection site erythema [Unknown]
